FAERS Safety Report 24383970 (Version 1)
Quarter: 2024Q4

REPORT INFORMATION
  Report Type: Spontaneous
  Country: US (occurrence: US)
  Receive Date: 20241001
  Receipt Date: 20241001
  Transmission Date: 20250115
  Serious: No
  Sender: JOHNSON AND JOHNSON
  Company Number: US-JNJFOC-20240956628

PATIENT

DRUGS (1)
  1. TALVEY [Suspect]
     Active Substance: TALQUETAMAB-TGVS
     Indication: Product used for unknown indication
     Route: 065
     Dates: start: 20231004

REACTIONS (5)
  - Ageusia [Recovering/Resolving]
  - Dry mouth [Recovered/Resolved]
  - Dysphagia [Unknown]
  - Swollen tongue [Unknown]
  - Speech disorder [Unknown]
